FAERS Safety Report 18984214 (Version 2)
Quarter: 2021Q2

REPORT INFORMATION
  Report Type: Spontaneous
  Country: US (occurrence: US)
  Receive Date: 20210309
  Receipt Date: 20210421
  Transmission Date: 20210717
  Serious: Yes (Other)
  Sender: FDA-Public Use
  Company Number: US-DRREDDYS-USA/USA/21/0132623

PATIENT
  Age: 51 Year
  Sex: Female

DRUGS (1)
  1. TESTOSTERONE GEL [Suspect]
     Active Substance: TESTOSTERONE
     Indication: HORMONE THERAPY
     Dosage: LOW?DOSE

REACTIONS (2)
  - Apocrine breast carcinoma [Unknown]
  - Intraductal proliferative breast lesion [Unknown]
